FAERS Safety Report 4897603-7 (Version None)
Quarter: 2006Q1

REPORT INFORMATION
  Report Type: 
  Country: None (occurrence: None)
  Receive Date: 20060130
  Receipt Date: 20060130
  Transmission Date: 20060701
  Serious: Yes (Other)
  Sender: FDA-Public Use
  Company Number: None

PATIENT
  Age: 43 Year
  Sex: Female
  Weight: 54.4316 kg

DRUGS (4)
  1. TEQUIN [Suspect]
     Indication: BRONCHITIS
     Dosage: 400MG  DAILY  PO
     Route: 048
     Dates: start: 20051130, end: 20051213
  2. TEQUIN [Suspect]
     Indication: PNEUMONIA
     Dosage: 400MG  DAILY  PO
     Route: 048
     Dates: start: 20051130, end: 20051213
  3. TEQUIN [Suspect]
     Indication: BRONCHITIS
     Dosage: 400MG  DAILY  PO
     Route: 048
     Dates: start: 20051227, end: 20051231
  4. TEQUIN [Suspect]
     Indication: PNEUMONIA
     Dosage: 400MG  DAILY  PO
     Route: 048
     Dates: start: 20051227, end: 20051231

REACTIONS (34)
  - ABASIA [None]
  - ANOREXIA [None]
  - ARTHRALGIA [None]
  - ASTHENIA [None]
  - BRONCHITIS [None]
  - CARDIAC FLUTTER [None]
  - CHEST DISCOMFORT [None]
  - DECREASED ACTIVITY [None]
  - DIZZINESS [None]
  - DYSPNOEA [None]
  - DYSSTASIA [None]
  - FEELING ABNORMAL [None]
  - GROIN PAIN [None]
  - HEART RATE INCREASED [None]
  - HEART RATE IRREGULAR [None]
  - HYPERSENSITIVITY [None]
  - HYPOAESTHESIA [None]
  - IMPAIRED WORK ABILITY [None]
  - INSOMNIA [None]
  - MALAISE [None]
  - NIGHT SWEATS [None]
  - PAIN IN EXTREMITY [None]
  - PALPITATIONS [None]
  - PANIC ATTACK [None]
  - PARAESTHESIA [None]
  - PERIPHERAL COLDNESS [None]
  - PHARYNGOLARYNGEAL PAIN [None]
  - TACHYCARDIA [None]
  - THIRST [None]
  - THROAT TIGHTNESS [None]
  - TINNITUS [None]
  - TREMOR [None]
  - VISION BLURRED [None]
  - WEIGHT DECREASED [None]
